FAERS Safety Report 11119744 (Version 1)
Quarter: 2015Q2

REPORT INFORMATION
  Report Type: Spontaneous
  Country: None (occurrence: None)
  Receive Date: 20150515
  Receipt Date: 20150515
  Transmission Date: 20150821
  Serious: No
  Sender: FDA-Public Use
  Company Number: None

PATIENT
  Age: 62 Year
  Sex: Female
  Weight: 62.6 kg

DRUGS (9)
  1. HCGT [Concomitant]
  2. VITAMIN B12 [Concomitant]
     Active Substance: CYANOCOBALAMIN
  3. XANAX [Concomitant]
     Active Substance: ALPRAZOLAM
  4. VITAMIN D [Concomitant]
     Active Substance: CHOLECALCIFEROL
  5. ASPIRIN. [Concomitant]
     Active Substance: ASPIRIN
  6. ADVAIR HFA [Concomitant]
     Active Substance: FLUTICASONE PROPIONATE\SALMETEROL XINAFOATE
  7. VITAMIN E [Concomitant]
     Active Substance: .ALPHA.-TOCOPHEROL
  8. BUPROPION HCL XL 150 MG GLOBAL/IMPAX [Suspect]
     Active Substance: BUPROPION HYDROCHLORIDE
     Route: 048
  9. MULTIPLE VITAMIN [Concomitant]
     Active Substance: VITAMINS

REACTIONS (19)
  - Asthenia [None]
  - Balance disorder [None]
  - Drug ineffective [None]
  - Drug withdrawal syndrome [None]
  - Irritability [None]
  - Disorientation [None]
  - Product quality issue [None]
  - Increased appetite [None]
  - Feeling abnormal [None]
  - Anxiety [None]
  - Impaired driving ability [None]
  - Product substitution issue [None]
  - Agitation [None]
  - Weight increased [None]
  - Tearfulness [None]
  - Disturbance in attention [None]
  - Palpitations [None]
  - Visual impairment [None]
  - Gait disturbance [None]

NARRATIVE: CASE EVENT DATE: 20150501
